FAERS Safety Report 20922414 (Version 1)
Quarter: 2022Q2

REPORT INFORMATION
  Report Type: Other
  Country: CA (occurrence: CA)
  Receive Date: 20220607
  Receipt Date: 20220607
  Transmission Date: 20220721
  Serious: Yes (Other)
  Sender: FDA-Public Use
  Company Number: CA-APOTEX-2022AP008679

PATIENT
  Sex: Female

DRUGS (1)
  1. RILUZOLE [Suspect]
     Active Substance: RILUZOLE
     Indication: Myelopathy
     Dosage: 50 MILLIGRAM, Q.12H
     Route: 048

REACTIONS (22)
  - Adjacent segment degeneration [Recovered/Resolved]
  - Arrhythmia [Recovered/Resolved]
  - Cervical spinal cord paralysis [Recovered/Resolved]
  - Device failure [Recovered/Resolved]
  - Dural tear [Recovered/Resolved]
  - Wound complication [Recovered/Resolved]
  - Wound infection [Recovered/Resolved]
  - Dysphonia [Recovered/Resolved]
  - Haematoma [Recovered/Resolved]
  - Myelopathy [Recovered/Resolved]
  - Neck pain [Recovered/Resolved]
  - Osteoarthritis [Recovered/Resolved]
  - Pseudarthrosis [Recovered/Resolved]
  - Embolism venous [Recovered/Resolved]
  - Paraesthesia [Recovered/Resolved]
  - Pain [Recovered/Resolved]
  - Dysphagia [Recovered/Resolved]
  - Diarrhoea [Recovered/Resolved]
  - Hepatic enzyme increased [Recovered/Resolved]
  - Abdominal pain [Recovered/Resolved]
  - Dizziness [Recovered/Resolved]
  - Nausea [Recovered/Resolved]
